FAERS Safety Report 4363886-5 (Version None)
Quarter: 2004Q2

REPORT INFORMATION
  Report Type: 
  Country: None (occurrence: None)
  Receive Date: 20040520
  Receipt Date: 20040520
  Transmission Date: 20050107
  Serious: Yes (Hospitalization)
  Sender: FDA-Public Use
  Company Number: None

PATIENT
  Age: 73 Year
  Sex: Male
  Weight: 68.1 kg

DRUGS (9)
  1. INTEGRILIN [Suspect]
     Indication: ANTIPLATELET THERAPY
     Dosage: 2(6.2 ML BOLUSES), 11 ML/HR IV
     Route: 042
     Dates: start: 20040511, end: 20040512
  2. MIDAZOLAM HCL [Concomitant]
  3. FENTANYL [Concomitant]
  4. DIPHENHYDRAMINE HCL [Concomitant]
  5. CEFAZOLIN [Concomitant]
  6. PLAVIX [Concomitant]
  7. PEPCID [Concomitant]
  8. ASPIRIN [Concomitant]
  9. PREDNISONE [Concomitant]

REACTIONS (1)
  - POST PROCEDURAL HAEMORRHAGE [None]
